FAERS Safety Report 10164308 (Version 1)
Quarter: 2014Q2

REPORT INFORMATION
  Report Type: Spontaneous
  Country: US (occurrence: US)
  Receive Date: 20140510
  Receipt Date: 20140510
  Transmission Date: 20141212
  Serious: No
  Sender: FDA-Public Use
  Company Number: US-BRISTOL-MYERS SQUIBB COMPANY-20035697

PATIENT
  Age: 37 Year
  Sex: Female
  Weight: 84.8 kg

DRUGS (4)
  1. BYDUREON [Suspect]
     Indication: TYPE 2 DIABETES MELLITUS
     Route: 058
     Dates: start: 20131220
  2. DEPAKOTE [Concomitant]
  3. ACIDOPHILUS [Concomitant]
  4. ELMIRON [Concomitant]

REACTIONS (6)
  - Diarrhoea [Recovering/Resolving]
  - Weight decreased [Unknown]
  - Fatigue [Unknown]
  - Injection site rash [Recovering/Resolving]
  - Decreased appetite [Unknown]
  - Dysgeusia [Unknown]
